FAERS Safety Report 20063105 (Version 1)
Quarter: 2021Q4

REPORT INFORMATION
  Report Type: Report from Study
  Country: US (occurrence: US)
  Receive Date: 20211112
  Receipt Date: 20211112
  Transmission Date: 20220303
  Serious: No
  Sender: FDA-Public Use
  Company Number: US-PHARMACOVIGILANCE-US-KAD-21-00008

PATIENT
  Age: 56 Year
  Sex: Male

DRUGS (2)
  1. REZUROCK [Suspect]
     Active Substance: BELUMOSUDIL
     Indication: Chronic graft versus host disease
     Dosage: 200 MILLIGRAM, UNK
     Route: 065
     Dates: start: 20210901, end: 20210907
  2. REZUROCK [Suspect]
     Active Substance: BELUMOSUDIL
     Dosage: 200MG EVERY OTHER NIGHT AT 9 PM WITH FOOD
     Route: 065
     Dates: start: 20210924

REACTIONS (10)
  - Weight decreased [Not Recovered/Not Resolved]
  - Off label use [Unknown]
  - Urticaria [Recovering/Resolving]
  - Blood creatinine increased [Not Recovered/Not Resolved]
  - Diarrhoea [Not Recovered/Not Resolved]
  - Abdominal pain upper [Not Recovered/Not Resolved]
  - Nausea [Not Recovered/Not Resolved]
  - Decreased appetite [Not Recovered/Not Resolved]
  - Asthenia [Not Recovered/Not Resolved]
  - Vomiting [Not Recovered/Not Resolved]

NARRATIVE: CASE EVENT DATE: 20210907
